FAERS Safety Report 23425195 (Version 2)
Quarter: 2024Q2

REPORT INFORMATION
  Report Type: Report from Study
  Country: EG (occurrence: EG)
  Receive Date: 20240121
  Receipt Date: 20240422
  Transmission Date: 20240716
  Serious: Yes (Hospitalization, Other)
  Sender: FDA-Public Use
  Company Number: EG-NOVOPROD-1160778

PATIENT
  Age: 12 Year
  Sex: Female

DRUGS (4)
  1. NOVORAPID [Suspect]
     Active Substance: INSULIN ASPART
     Indication: Product used for unknown indication
     Dosage: UNK(WITHOUT REGULAR DOSES )
  2. NOVORAPID [Suspect]
     Active Substance: INSULIN ASPART
     Dosage: 2 IU(ONLY IF BGL BECAME IS HIGHER THAN 300 MG/DL )
  3. NOVORAPID [Suspect]
     Active Substance: INSULIN ASPART
     Dosage: 3 OR 4 IU(THE BGLS STILL HIGH AFTER MEALS)
  4. TRESIBA [Suspect]
     Active Substance: INSULIN DEGLUDEC
     Indication: Product used for unknown indication
     Dosage: 12 IU, QD(AT NIGHT)

REACTIONS (3)
  - Device delivery system issue [Unknown]
  - Diabetic hyperglycaemic coma [Recovered/Resolved]
  - Hypoglycaemia [Not Recovered/Not Resolved]

NARRATIVE: CASE EVENT DATE: 20231210
